FAERS Safety Report 11233610 (Version 1)
Quarter: 2015Q2

REPORT INFORMATION
  Report Type: Spontaneous
  Country: US (occurrence: None)
  Receive Date: 20150630
  Receipt Date: 20150630
  Transmission Date: 20150821
  Serious: Yes (Death, Hospitalization)
  Sender: FDA-Public Use
  Company Number: INS201506-000265

PATIENT
  Age: 85 Year
  Sex: Female
  Weight: 53.52 kg

DRUGS (13)
  1. METHADONE HCL [Concomitant]
     Active Substance: METHADONE HYDROCHLORIDE
  2. VITAMIN B-12 (CYANOCOBALAMIN) [Concomitant]
  3. MUGARD(WATER, GLYCERIN, BENZYL ALCOHOL, SODIUM SACCHARIN, CARBOMER HOMOPOLYMER A, POTASSIUM HYDROXIDE, CITRIC ACID, POLYSORBATE 60, PHOSPHORIC ACID)(WATER, GLYCERIN, BENZYL ALCOHOL, SODIUM SACCHARIN, CARBOMER HOMOPOLYMER A, POTASSIUM HYDROXIDE, CITRIC ACID, POLYSORBATE 60, PHOSPHORIC ACID) [Concomitant]
  4. SUBSYS [Suspect]
     Active Substance: FENTANYL
     Indication: PAIN
     Dosage: 600 MCG, 1 SPRAY Q4H AS NEEDED, SUBLINGUAL
     Route: 060
  5. CRESTOR (ROSUBASTATIN CALCIUM) [Concomitant]
  6. FENTANYL. [Concomitant]
     Active Substance: FENTANYL
  7. AMLODIPINE BESYLATE. [Concomitant]
     Active Substance: AMLODIPINE BESYLATE
  8. LASIX [Concomitant]
     Active Substance: FUROSEMIDE
  9. DEXAMETHASONE. [Concomitant]
     Active Substance: DEXAMETHASONE
  10. FOLIC ACID. [Concomitant]
     Active Substance: FOLIC ACID
  11. ATENOLOL. [Concomitant]
     Active Substance: ATENOLOL
  12. OXYCODONE HCL [Concomitant]
     Active Substance: OXYCODONE HYDROCHLORIDE
  13. XANAX [Concomitant]
     Active Substance: ALPRAZOLAM

REACTIONS (1)
  - Hospice care [None]

NARRATIVE: CASE EVENT DATE: 20150412
